FAERS Safety Report 25923857 (Version 3)
Quarter: 2025Q4

REPORT INFORMATION
  Report Type: Spontaneous
  Country: GB (occurrence: GB)
  Receive Date: 20251015
  Receipt Date: 20251124
  Transmission Date: 20260117
  Serious: Yes (Other)
  Sender: MYLAN
  Company Number: GB-MYLANLABS-2025M1079380

PATIENT
  Age: 60 Year
  Sex: Male
  Weight: 75.5 kg

DRUGS (11)
  1. CLOZARIL [Suspect]
     Active Substance: CLOZAPINE
     Indication: Schizophrenia
     Dosage: UNK, BID (100MG IN THE MORNING AND 400MG AT NIGHT)
     Dates: start: 20011210
  2. CLOZARIL [Suspect]
     Active Substance: CLOZAPINE
     Dosage: UNK, BID (150MG IN THE MORNING AND 450MG AT NIGHT)
  3. FLUOXETINE [Concomitant]
     Active Substance: FLUOXETINE HYDROCHLORIDE
     Indication: Depressed mood
     Dosage: 60 MILLIGRAM, QD (DAILY)
  4. FLUOXETINE [Concomitant]
     Active Substance: FLUOXETINE HYDROCHLORIDE
     Dosage: 40 MILLIGRAM, QD
     Dates: start: 20140716
  5. METFORMIN [Concomitant]
     Active Substance: METFORMIN HYDROCHLORIDE
     Indication: Diabetes mellitus
     Dosage: 1000 MILLIGRAM, BID (BD)
     Dates: start: 20190904
  6. ALBUTEROL [Concomitant]
     Active Substance: ALBUTEROL
     Indication: Emphysema
     Dosage: 100 MICROGRAM, PRN (PRN UP TO QDS) (INHALER CFC FREE)
  7. BUDESONIDE\FORMOTEROL\GLYCOPYRRONIUM [Concomitant]
     Active Substance: BUDESONIDE\FORMOTEROL\GLYCOPYRRONIUM
     Indication: Emphysema
     Dosage: 2 DOSAGE FORM, BID (PRESSURIZED INHALER, TWO DOSES BD)
     Dates: start: 20240731
  8. FAMOTIDINE [Concomitant]
     Active Substance: FAMOTIDINE
     Dosage: UNK UNK, BID (ONE OR TWO TO BE TAKEN TWICE A DAY)
     Dates: start: 20220404
  9. SIMVASTATIN [Concomitant]
     Active Substance: SIMVASTATIN
     Dosage: 1 DOSAGE FORM, PM (ONE TO BE TAKEN AT NIGHT)
     Dates: start: 20110810
  10. THIAMINE [Concomitant]
     Active Substance: THIAMINE
     Dosage: 1 DOSAGE FORM, BID (ONE TO BE TAKEN TWICE A DAY)
     Dates: start: 20120910
  11. NIACINAMIDE\PYRIDOXINE HYDROCHLORIDE\RIBOFLAVIN\THIAMINE HYDROCHLORIDE [Concomitant]
     Active Substance: NIACINAMIDE\PYRIDOXINE HYDROCHLORIDE\RIBOFLAVIN\THIAMINE HYDROCHLORIDE
     Dosage: 1 DOSAGE FORM, QD (ONE TO BE TAKEN EACH DAY)
     Dates: start: 20120910

REACTIONS (8)
  - Chronic obstructive pulmonary disease [Unknown]
  - Large intestine polyp [Unknown]
  - Differential white blood cell count abnormal [Recovered/Resolved]
  - White blood cell count increased [Recovered/Resolved]
  - Neutrophil count increased [Recovered/Resolved]
  - Lymphocyte count decreased [Recovered/Resolved]
  - Monocyte count decreased [Not Recovered/Not Resolved]
  - Eosinophil count decreased [Not Recovered/Not Resolved]

NARRATIVE: CASE EVENT DATE: 20250326
